FAERS Safety Report 6838054-5 (Version None)
Quarter: 2010Q3

REPORT INFORMATION
  Report Type: 
  Country: None (occurrence: None)
  Receive Date: 20100713
  Receipt Date: 20070530
  Transmission Date: 20110219
  Serious: No
  Sender: FDA-Public Use
  Company Number: US-PFIZER INC-2007045353

PATIENT
  Sex: Female
  Weight: 95.3 kg

DRUGS (13)
  1. CHANTIX [Suspect]
     Dates: start: 20070301
  2. VASOTEC [Concomitant]
  3. LIPITOR [Concomitant]
  4. ESTRATEST H.S. [Concomitant]
  5. LISINOPRIL [Concomitant]
  6. NORVASC [Concomitant]
  7. METOPROLOL [Concomitant]
  8. PROTONIX [Concomitant]
  9. VITAMIN C [Concomitant]
  10. VITAMIN E [Concomitant]
  11. VITAMIN B COMPLEX CAP [Concomitant]
  12. SYNTHROID [Concomitant]
  13. FLONASE [Concomitant]

REACTIONS (5)
  - HYPERSENSITIVITY [None]
  - INCREASED APPETITE [None]
  - JOINT SWELLING [None]
  - OEDEMA PERIPHERAL [None]
  - WEIGHT INCREASED [None]
